FAERS Safety Report 16386682 (Version 1)
Quarter: 2019Q2

REPORT INFORMATION
  Report Type: Report from Study
  Country: US (occurrence: US)
  Receive Date: 20190604
  Receipt Date: 20190604
  Transmission Date: 20190711
  Serious: Yes (Hospitalization)
  Sender: FDA-Public Use
  Company Number: US-ROCHE-2325815

PATIENT
  Sex: Female

DRUGS (11)
  1. ATORVASTATIN [Concomitant]
     Active Substance: ATORVASTATIN
     Indication: OFF LABEL USE
     Route: 048
  2. LEVETIRACETAM. [Concomitant]
     Active Substance: LEVETIRACETAM
     Indication: OFF LABEL USE
     Dosage: 0.5 TABLET TWICE DAILY FOR 2 DAYS THEN TAKE ONE TABLET TWICE THEREAFTER
     Route: 048
  3. HYDROXYCHLOROQUINE [Concomitant]
     Active Substance: HYDROXYCHLOROQUINE
     Indication: OFF LABEL USE
     Dosage: 1 TABLET TWICE IN DAY
     Route: 048
  4. ENOXAPARIN [Concomitant]
     Active Substance: ENOXAPARIN
     Indication: OFF LABEL USE
     Dosage: INJECT 0.6 ML SC Q 12 HR FOR 7 DAYS
     Route: 058
  5. CELLCEPT [Suspect]
     Active Substance: MYCOPHENOLATE MOFETIL\MYCOPHENOLATE MOFETIL HYDROCHLORIDE
     Indication: SYSTEMIC LUPUS ERYTHEMATOSUS
     Route: 048
  6. FLONASE [Concomitant]
     Active Substance: FLUTICASONE PROPIONATE
     Indication: OFF LABEL USE
     Route: 045
  7. WARFARIN [Concomitant]
     Active Substance: WARFARIN
     Route: 048
  8. WARFARIN [Concomitant]
     Active Substance: WARFARIN
     Route: 048
  9. CELLCEPT [Suspect]
     Active Substance: MYCOPHENOLATE MOFETIL\MYCOPHENOLATE MOFETIL HYDROCHLORIDE
     Indication: OFF LABEL USE
  10. WARFARIN [Concomitant]
     Active Substance: WARFARIN
     Indication: OFF LABEL USE
     Route: 048
  11. PLAQUENIL [Concomitant]
     Active Substance: HYDROXYCHLOROQUINE SULFATE
     Indication: OFF LABEL USE
     Route: 048

REACTIONS (4)
  - Lung disorder [Recovering/Resolving]
  - Off label use [Unknown]
  - Systemic lupus erythematosus [Recovering/Resolving]
  - Intentional product use issue [Unknown]
